FAERS Safety Report 9571513 (Version 2)
Quarter: 2013Q4

REPORT INFORMATION
  Report Type: Spontaneous
  Country: US (occurrence: US)
  Receive Date: 20131001
  Receipt Date: 20131021
  Transmission Date: 20140711
  Serious: No
  Sender: FDA-Public Use
  Company Number: US-PFIZER INC-2013279456

PATIENT
  Age: 66 Year
  Sex: Female

DRUGS (4)
  1. XELJANZ [Suspect]
     Indication: RHEUMATOID ARTHRITIS
     Dosage: 5 MG, TWO TIMES A DAY
     Route: 048
     Dates: start: 20130726, end: 20130917
  2. IMURAN [Concomitant]
     Dosage: 250 MG, DAILY
  3. PAXIL [Concomitant]
     Dosage: 50 MG, DAILY
  4. ALLEGRA [Concomitant]
     Dosage: 180 MG, UNK

REACTIONS (1)
  - Hepatic enzyme abnormal [Unknown]
